FAERS Safety Report 7318562-3 (Version None)
Quarter: 2011Q1

REPORT INFORMATION
  Report Type: 
  Country: None (occurrence: None)
  Receive Date: 20110228
  Receipt Date: 20110215
  Transmission Date: 20110831
  Serious: Yes (Life-Threatening)
  Sender: FDA-Public Use
  Company Number: HU-JNJFOC-20110206788

PATIENT
  Age: 18 Year
  Sex: Male

DRUGS (3)
  1. CLONAZEPAM [Suspect]
     Indication: TOURETTE'S DISORDER
     Route: 065
  2. TIAPRIDE [Suspect]
     Indication: TOURETTE'S DISORDER
     Route: 065
  3. HALOPERIDOL [Suspect]
     Indication: TOURETTE'S DISORDER
     Route: 065

REACTIONS (2)
  - TIC [None]
  - THERAPY CESSATION [None]
